FAERS Safety Report 20443651 (Version 1)
Quarter: 2022Q1

REPORT INFORMATION
  Report Type: Spontaneous
  Country: US (occurrence: None)
  Receive Date: 20220207
  Receipt Date: 20220207
  Transmission Date: 20220423
  Serious: Yes (Other)
  Sender: FDA-Public Use
  Company Number: None

PATIENT
  Age: 41 Year
  Sex: Male
  Weight: 77.85 kg

DRUGS (14)
  1. IMMUNE GLOBULIN SUBCUTANEOUS (HUMAN) [Suspect]
     Active Substance: HUMAN IMMUNOGLOBULIN G
     Indication: Immunodeficiency common variable
     Dosage: OTHER QUANTITY : 2 BOTTLES;?OTHER FREQUENCY : EVERY 4 WEEKS.;?OTHER ROUTE : DELIVERED BY IV THROUGH
     Route: 050
     Dates: start: 20220204, end: 20220204
  2. IMMUNE GLOBULIN SUBCUTANEOUS (HUMAN) [Suspect]
     Active Substance: HUMAN IMMUNOGLOBULIN G
     Indication: Immunodeficiency common variable
     Dosage: OTHER QUANTITY : 1 BOTTLE;?OTHER FREQUENCY : EVERY 4 WEEKS;?OTHER ROUTE : DELIVERED BY IV THROUGH ME
     Route: 050
     Dates: start: 20220204, end: 20220204
  3. MONTELUKAST [Concomitant]
     Active Substance: MONTELUKAST SODIUM
  4. SPIRIVA RESPIMAT [Concomitant]
     Active Substance: TIOTROPIUM BROMIDE
  5. ADVAIR DISKUS [Concomitant]
     Active Substance: FLUTICASONE PROPIONATE\SALMETEROL XINAFOATE
  6. AZELASTINE [Concomitant]
     Active Substance: AZELASTINE
  7. ALBUTEROL SULFATE [Concomitant]
     Active Substance: ALBUTEROL SULFATE
  8. AZITHROMYCIN [Concomitant]
     Active Substance: AZITHROMYCIN
  9. CETIRIZINE [Concomitant]
     Active Substance: CETIRIZINE HYDROCHLORIDE
  10. IBUPROFEN [Concomitant]
     Active Substance: IBUPROFEN
  11. HERBALS\TURMERIC [Concomitant]
     Active Substance: HERBALS\TURMERIC
  12. GINGER [Concomitant]
     Active Substance: GINGER
  13. UP4 PROBIOTICS PLUS PREBIOTIC [Concomitant]
  14. VITAFUSION VITAMIN D3 [Concomitant]

REACTIONS (9)
  - Chills [None]
  - Pyrexia [None]
  - Chest discomfort [None]
  - Musculoskeletal chest pain [None]
  - Influenza like illness [None]
  - Vomiting [None]
  - Myalgia [None]
  - Muscle spasms [None]
  - Product substitution issue [None]

NARRATIVE: CASE EVENT DATE: 20220204
